FAERS Safety Report 11617587 (Version 2)
Quarter: 2015Q4

REPORT INFORMATION
  Report Type: Spontaneous
  Country: AT (occurrence: AT)
  Receive Date: 20151009
  Receipt Date: 20151207
  Transmission Date: 20160304
  Serious: Yes (Hospitalization, Other)
  Sender: FDA-Public Use
  Company Number: AT-ABBVIE-15P-009-1476254-00

PATIENT
  Sex: Female

DRUGS (3)
  1. MADOPAR [Concomitant]
     Active Substance: BENSERAZIDE HYDROCHLORIDE\LEVODOPA
     Indication: PARKINSON^S DISEASE
     Dosage: 100/25 MG/ 0-0-0-2
     Route: 048
  2. DUODOPA [Suspect]
     Active Substance: CARBIDOPA\LEVODOPA
     Indication: PARKINSON^S DISEASE
     Dosage: 16 HOUR THERAPY:MD: 6.5 MLED: 3.0 MLCR: 2.8 ML/H
     Route: 050
     Dates: start: 20130912
  3. PK MERZ [Concomitant]
     Active Substance: AMANTADINE SULFATE
     Indication: PARKINSON^S DISEASE
     Dosage: 1-1-0
     Route: 048

REACTIONS (2)
  - Anal cancer [Unknown]
  - Colon cancer [Unknown]
